FAERS Safety Report 8606768-2 (Version None)
Quarter: 2012Q3

REPORT INFORMATION
  Report Type: 
  Country: None (occurrence: None)
  Receive Date: 20120820
  Receipt Date: 20120816
  Transmission Date: 20120928
  Serious: Yes (Other)
  Sender: FDA-Public Use
  Company Number: US-BAYER-2012-084719

PATIENT
  Age: 40 Year
  Sex: Female

DRUGS (3)
  1. BETASERON [Suspect]
     Dosage: UNK
     Dates: start: 20040729, end: 20050520
  2. BETASERON [Suspect]
     Dosage: 8 MIU, QOD
     Route: 058
     Dates: start: 20060309
  3. BETASERON [Suspect]
     Indication: MULTIPLE SCLEROSIS
     Dosage: UNK
     Dates: start: 20000929, end: 20031111

REACTIONS (6)
  - NAUSEA [None]
  - PYREXIA [None]
  - HYPOAESTHESIA [None]
  - TREMOR [None]
  - FALL [None]
  - MOBILITY DECREASED [None]
